FAERS Safety Report 7383920-8 (Version None)
Quarter: 2011Q1

REPORT INFORMATION
  Report Type: 
  Country: None (occurrence: None)
  Receive Date: 20110330
  Receipt Date: 20110228
  Transmission Date: 20110831
  Serious: No
  Sender: FDA-Public Use
  Company Number: US-MYLANLABS-2011S1004216

PATIENT
  Age: 63 Year
  Sex: Male
  Weight: 103.42 kg

DRUGS (4)
  1. CELLCEPT /01275102/ [Concomitant]
     Indication: TRANSPLANT
  2. INSULIN [Concomitant]
     Indication: BLOOD GLUCOSE
     Dosage: SLIDING SCALE 70 - 30 UNITS BASED ON GLUCOSE LEVEL
  3. PROGRAF [Suspect]
     Indication: HEART TRANSPLANT
     Route: 048
     Dates: start: 20100101, end: 20110101
  4. TACROLIMUS [Suspect]
     Indication: HEART TRANSPLANT
     Route: 048
     Dates: start: 20110101

REACTIONS (1)
  - BLOOD GLUCOSE INCREASED [None]
